FAERS Safety Report 8845697 (Version 23)
Quarter: 2015Q4

REPORT INFORMATION
  Report Type: Report from Study
  Country: US (occurrence: US)
  Receive Date: 20121017
  Receipt Date: 20151130
  Transmission Date: 20160305
  Serious: Yes (Death, Hospitalization, Other)
  Sender: FDA-Public Use
  Company Number: US-ROCHE-1109766

PATIENT
  Age: 49 Year
  Sex: Male
  Weight: 109 kg

DRUGS (37)
  1. ATEZOLIZUMAB [Suspect]
     Active Substance: ATEZOLIZUMAB
     Dosage: MOST RECENT DOSE PRIOR TO NAUSEA AND VOMITING: 2186MG ON 12/SEP/2012
     Route: 042
     Dates: start: 20120912
  2. HYDROCODONE HCL [Concomitant]
     Route: 048
     Dates: start: 20121014, end: 20121014
  3. ZOFRAN [Concomitant]
     Active Substance: ONDANSETRON HYDROCHLORIDE
     Indication: NAUSEA
     Route: 048
     Dates: start: 20120827
  4. NORMAL SALINE [Concomitant]
     Active Substance: SODIUM CHLORIDE
     Indication: RENAL FAILURE
     Dosage: 1 OTHER
     Route: 042
     Dates: start: 20121003, end: 20121003
  5. NORMAL SALINE [Concomitant]
     Active Substance: SODIUM CHLORIDE
     Dosage: 1 OTHER
     Route: 042
     Dates: start: 20120906, end: 20120906
  6. GABAPENTIN. [Concomitant]
     Active Substance: GABAPENTIN
     Indication: ARTHRALGIA
     Route: 048
     Dates: start: 20121019
  7. VEMURAFENIB [Suspect]
     Active Substance: VEMURAFENIB
     Indication: METASTATIC MALIGNANT MELANOMA
     Dosage: LAST DOSE PRIOR TO RI AND FEVER (1):13/AUG2012. LAST DOSE PRIOR TO INC AST, FEVER (2), SYNCOPE: 22/A
     Route: 048
     Dates: start: 20120813
  8. VEMURAFENIB [Suspect]
     Active Substance: VEMURAFENIB
     Dosage: LAST DOSE PRIOR TO VOMITING AND PAIN: 26/SEP/2012.?LAST DOSE PRIOR TO DIARRHEA: 21/SEP/2012
     Route: 048
     Dates: start: 20120918, end: 20120929
  9. ZITHROMAX [Concomitant]
     Active Substance: AZITHROMYCIN DIHYDRATE
     Indication: OROPHARYNGEAL PAIN
     Route: 048
     Dates: start: 20120822, end: 20120825
  10. HYDROXYZINE [Concomitant]
     Active Substance: HYDROXYZINE\HYDROXYZINE HYDROCHLORIDE
  11. DILAUDID [Concomitant]
     Active Substance: HYDROMORPHONE HYDROCHLORIDE
     Indication: ARTHRALGIA
     Route: 048
     Dates: start: 20121019
  12. SODIUM BICARBONATE. [Concomitant]
     Active Substance: SODIUM BICARBONATE
     Dosage: ON HOLD
     Route: 042
  13. CEFEPIME [Concomitant]
     Active Substance: CEFEPIME HYDROCHLORIDE
  14. FENTANYL. [Concomitant]
     Active Substance: FENTANYL
     Indication: ARTHRALGIA
  15. ONDANSETRON [Concomitant]
     Active Substance: ONDANSETRON
     Indication: NAUSEA
     Route: 048
     Dates: start: 20120919, end: 20121104
  16. DEXTROSE. [Concomitant]
     Active Substance: DEXTROSE
     Route: 042
     Dates: start: 20120829, end: 20120831
  17. NORMAL SALINE [Concomitant]
     Active Substance: SODIUM CHLORIDE
     Dosage: 1 OTHER
     Route: 042
     Dates: start: 20120919, end: 20120921
  18. ACYCLOVIR. [Concomitant]
     Active Substance: ACYCLOVIR
     Indication: OROPHARYNGEAL PAIN
     Route: 065
     Dates: start: 20120830, end: 20120918
  19. ATEZOLIZUMAB [Suspect]
     Active Substance: ATEZOLIZUMAB
     Indication: METASTATIC MALIGNANT MELANOMA
     Dosage: LAST DOSE PRIOR TO DEHYDRATION, RENAL INSUFFICIENCY, TRANSAMINITIS, INCREASED AST, SYNCOPE, FEVER (1
     Route: 042
     Dates: start: 20120813, end: 20120904
  20. ROBITUSSIN AC (UNITED STATES) [Concomitant]
     Indication: COUGH
     Route: 048
     Dates: start: 20120919, end: 20120922
  21. PRILOSEC [Concomitant]
     Active Substance: OMEPRAZOLE MAGNESIUM
     Indication: GASTROOESOPHAGEAL REFLUX DISEASE
     Route: 048
     Dates: start: 20120919
  22. VANCOMYCIN [Concomitant]
     Active Substance: VANCOMYCIN
     Indication: INFECTION PROPHYLAXIS
     Route: 050
     Dates: start: 20120828, end: 20120828
  23. IBUPROFEN. [Concomitant]
     Active Substance: IBUPROFEN
     Indication: CONSTIPATION
     Route: 048
     Dates: start: 20120904
  24. MICAFUNGIN [Concomitant]
     Active Substance: MICAFUNGIN
     Indication: OROPHARYNGEAL PAIN
     Route: 042
     Dates: start: 20120829, end: 20120831
  25. NORMAL SALINE [Concomitant]
     Active Substance: SODIUM CHLORIDE
     Dosage: 1 OTHER
     Route: 042
     Dates: start: 20120918, end: 20120918
  26. CYMBALTA [Concomitant]
     Active Substance: DULOXETINE HYDROCHLORIDE
     Indication: ANXIETY
     Route: 048
     Dates: start: 20121019
  27. HYDROCODONE HCL [Concomitant]
     Indication: ARTHRALGIA
     Route: 048
     Dates: start: 20120827, end: 20120901
  28. DAPTOMYCIN. [Concomitant]
     Active Substance: DAPTOMYCIN
  29. DULCOLAX (BISACODYL) [Concomitant]
     Active Substance: BISACODYL
     Indication: CONSTIPATION
     Route: 048
     Dates: start: 20120903
  30. FENTANYL. [Concomitant]
     Active Substance: FENTANYL
     Indication: MYALGIA
     Route: 062
     Dates: start: 20121019
  31. VEMURAFENIB [Suspect]
     Active Substance: VEMURAFENIB
     Dosage: MOST RECENT DOSE PRIOR TO DEHYDRATION: 720 MG ON 2/OCT/2012.?MOST RECENT DOSE PRIOR TO NAUSEA: 480MG
     Route: 048
     Dates: end: 20121002
  32. IBUPROFEN. [Concomitant]
     Active Substance: IBUPROFEN
     Indication: HEADACHE
     Route: 048
     Dates: start: 20000601, end: 20121104
  33. PROTONIX (UNITED STATES) [Concomitant]
     Indication: GASTROOESOPHAGEAL REFLUX DISEASE
     Route: 048
     Dates: start: 20120918
  34. ATIVAN [Concomitant]
     Active Substance: LORAZEPAM
     Indication: ANXIETY
     Route: 048
     Dates: start: 20120918
  35. NORMAL SALINE [Concomitant]
     Active Substance: SODIUM CHLORIDE
     Dosage: 1 OTHER
     Route: 042
     Dates: start: 20120924, end: 20120924
  36. NORMAL SALINE [Concomitant]
     Active Substance: SODIUM CHLORIDE
     Dosage: 1 OTHER
     Route: 042
     Dates: start: 20121003, end: 20121003
  37. NORMAL SALINE [Concomitant]
     Active Substance: SODIUM CHLORIDE
     Dosage: 1 OTHER
     Route: 042
     Dates: start: 20120904, end: 20120904

REACTIONS (6)
  - Nausea [Not Recovered/Not Resolved]
  - Pyrexia [Recovered/Resolved]
  - Transaminases increased [Recovered/Resolved]
  - Dehydration [Recovered/Resolved]
  - Vomiting [Recovered/Resolved]
  - Diarrhoea [Not Recovered/Not Resolved]

NARRATIVE: CASE EVENT DATE: 20120826
